FAERS Safety Report 7924876-6 (Version None)
Quarter: 2011Q4

REPORT INFORMATION
  Report Type: 
  Country: None (occurrence: None)
  Receive Date: 20111118
  Receipt Date: 20110329
  Transmission Date: 20120403
  Serious: No
  Sender: FDA-Public Use
  Company Number: US-AMGEN-USASP2011016906

PATIENT
  Sex: Male

DRUGS (3)
  1. METHOTREXATE [Concomitant]
     Dates: start: 20040101
  2. ENBREL [Suspect]
     Indication: RHEUMATOID ARTHRITIS
     Dosage: 50 MG, QWK
     Dates: start: 20100928, end: 20110326
  3. PLAQUENIL [Concomitant]
     Dates: start: 20030101

REACTIONS (3)
  - INFECTION [None]
  - RHEUMATOID ARTHRITIS [None]
  - SINUSITIS [None]
